FAERS Safety Report 13961196 (Version 3)
Quarter: 2017Q4

REPORT INFORMATION
  Report Type: Spontaneous
  Country: DE (occurrence: DE)
  Receive Date: 20170912
  Receipt Date: 20171012
  Transmission Date: 20180320
  Serious: Yes (Hospitalization, Other)
  Sender: FDA-Public Use
  Company Number: DE-BRISTOL-MYERS SQUIBB COMPANY-BMS-2017-081319

PATIENT
  Age: 82 Year
  Sex: Female
  Weight: 65 kg

DRUGS (1)
  1. ELIQUIS [Suspect]
     Active Substance: APIXABAN
     Indication: CEREBROVASCULAR ACCIDENT PROPHYLAXIS
     Dosage: 5 MG, BID
     Route: 048
     Dates: start: 201611, end: 201706

REACTIONS (1)
  - Autoimmune hepatitis [Recovered/Resolved]

NARRATIVE: CASE EVENT DATE: 201702
